FAERS Safety Report 4981594-4 (Version None)
Quarter: 2006Q2

REPORT INFORMATION
  Report Type: 
  Country: None (occurrence: None)
  Receive Date: 20060421
  Receipt Date: 20060421
  Transmission Date: 20061013
  Serious: Yes (Other)
  Sender: FDA-Public Use
  Company Number: None

PATIENT
  Sex: Female

DRUGS (2)
  1. TOPROL-XL [Suspect]
     Indication: ATRIAL FIBRILLATION
     Dosage: 50 MG BID PO
     Route: 048
     Dates: start: 20051123, end: 20060101
  2. TOPROL-XL [Suspect]
     Indication: CARDIAC FAILURE CONGESTIVE
     Dosage: 50 MG BID PO
     Route: 048
     Dates: start: 20051123, end: 20060101

REACTIONS (2)
  - PRURITUS [None]
  - RASH [None]
